FAERS Safety Report 8450270-8 (Version None)
Quarter: 2012Q2

REPORT INFORMATION
  Report Type: 
  Country: None (occurrence: None)
  Receive Date: 20120620
  Receipt Date: 20120613
  Transmission Date: 20120825
  Serious: Yes (Hospitalization)
  Sender: FDA-Public Use
  Company Number: CA-B.I. PHARMACEUTICALS,INC./RIDGEFIELD-2012-CN-01236CN

PATIENT
  Age: 23 Year
  Sex: Female

DRUGS (2)
  1. PRADAXA [Suspect]
     Indication: CAROTID ARTERY DISSECTION
     Dosage: 300 MG
     Dates: start: 20110805, end: 20110806
  2. BIRTH CONTROL DRUG [Concomitant]

REACTIONS (1)
  - EMBOLIC STROKE [None]
